FAERS Safety Report 4364622-9 (Version None)
Quarter: 2004Q2

REPORT INFORMATION
  Report Type: 
  Country: None (occurrence: None)
  Receive Date: 20040521
  Receipt Date: 20040505
  Transmission Date: 20050107
  Serious: Yes (Hospitalization)
  Sender: FDA-Public Use
  Company Number: 430017P04USA

PATIENT
  Age: 61 Year
  Sex: Female
  Weight: 77.7919 kg

DRUGS (10)
  1. NOVANTRONE [Suspect]
     Indication: MULTIPLE SCLEROSIS
     Dosage: 28 MG, 1 IN 3 MONTHS, INTRAVENOUS
     Route: 042
     Dates: start: 20020124
  2. BACTRIM [Concomitant]
  3. GLATIRAMER ACETATE [Concomitant]
  4. OXYBUTYNIN [Concomitant]
  5. IMIPRAMINE [Concomitant]
  6. SERTRALINE HYDROCHLORIDE [Concomitant]
  7. ASPIRIN [Concomitant]
  8. LOSARTAN POTASSIUM [Concomitant]
  9. ATORVASTATIN CALCIUM [Concomitant]
  10. INSULIN [Concomitant]

REACTIONS (8)
  - ASTHENIA [None]
  - BLOOD ALKALINE PHOSPHATASE INCREASED [None]
  - HAEMOGLOBIN DECREASED [None]
  - HYPOAESTHESIA [None]
  - LEUKOPENIA [None]
  - MALAISE [None]
  - NEUTROPHIL PERCENTAGE DECREASED [None]
  - PYREXIA [None]
